FAERS Safety Report 7830159-5 (Version None)
Quarter: 2011Q4

REPORT INFORMATION
  Report Type: 
  Country: None (occurrence: None)
  Receive Date: 20111021
  Receipt Date: 20111011
  Transmission Date: 20120403
  Serious: Yes (Other)
  Sender: FDA-Public Use
  Company Number: US-JNJFOC-20111004922

PATIENT
  Sex: Female

DRUGS (14)
  1. VITAMIN D [Concomitant]
     Route: 065
  2. SYNTHROID [Concomitant]
     Dosage: 250 MCQ
     Route: 065
  3. XANAX [Concomitant]
     Route: 065
  4. REMICADE [Suspect]
     Indication: CROHN'S DISEASE
     Route: 042
     Dates: start: 20100501
  5. VITAMIN AND MINERAL PRENATAL SUPPLEMENT W/ FOLIC ACID CAP [Concomitant]
     Route: 065
  6. PREDNISONE [Concomitant]
     Route: 065
  7. PROMETHAZINE [Concomitant]
     Dosage: 25
     Route: 065
  8. DOMPERIDONE [Concomitant]
     Route: 065
  9. IRON [Concomitant]
     Route: 065
  10. MAGNESIUM GLUCONATE [Concomitant]
     Route: 065
  11. TOPAMAX [Concomitant]
     Dosage: 200
     Route: 065
  12. POTASSIUM [Concomitant]
     Route: 065
  13. CLONAZEPAM [Concomitant]
     Route: 065
  14. DEXILANT [Concomitant]
     Route: 065

REACTIONS (2)
  - ABORTION SPONTANEOUS [None]
  - MATERNAL EXPOSURE DURING PREGNANCY [None]
